FAERS Safety Report 5401943-2 (Version None)
Quarter: 2007Q3

REPORT INFORMATION
  Report Type: 
  Country: None (occurrence: None)
  Receive Date: 20070726
  Receipt Date: 20070606
  Transmission Date: 20080115
  Serious: Yes (Hospitalization)
  Sender: FDA-Public Use
  Company Number: 6034955

PATIENT
  Age: 35 Year
  Sex: Female

DRUGS (1)
  1. WARFARIN SODIUM [Suspect]
     Indication: AORTIC VALVE REPLACEMENT
     Dosage: ORAL
     Route: 048

REACTIONS (6)
  - CARDIAC TAMPONADE [None]
  - HAEMORRHAGE [None]
  - PERICARDIAL CALCIFICATION [None]
  - PERICARDIAL HAEMORRHAGE [None]
  - POST PROCEDURAL FISTULA [None]
  - SUBCUTANEOUS ABSCESS [None]
